FAERS Safety Report 13072422 (Version 2)
Quarter: 2017Q1

REPORT INFORMATION
  Report Type: Spontaneous
  Country: JP (occurrence: JP)
  Receive Date: 20161229
  Receipt Date: 20170126
  Transmission Date: 20170428
  Serious: Yes (Death, Other)
  Sender: FDA-Public Use
  Company Number: JP-GILEAD-2016-0250807

PATIENT
  Age: 65 Year
  Sex: Male
  Weight: 68.1 kg

DRUGS (21)
  1. HARVONI [Suspect]
     Active Substance: LEDIPASVIR\SOFOSBUVIR
     Indication: CHRONIC HEPATITIS C
     Dosage: 1 DF, UNK
     Route: 048
     Dates: start: 20161010, end: 20161225
  2. GASTER [Concomitant]
     Active Substance: FAMOTIDINE
     Dosage: 20 MG, BID
     Dates: end: 20161225
  3. BUSCOPAN [Concomitant]
     Active Substance: BUTYLSCOPOLAMINE BROMIDE
     Dosage: 10 MG, TID
     Dates: end: 20161225
  4. TELEMINSOFT [Concomitant]
     Active Substance: BISACODYL
     Dosage: 10 MG, UNK
     Route: 054
     Dates: end: 20161225
  5. PLETAAL [Concomitant]
     Active Substance: CILOSTAZOL
     Indication: CEREBRAL INFARCTION
     Dosage: 100 MG, BID
     Dates: end: 20161225
  6. EQUA [Concomitant]
     Active Substance: VILDAGLIPTIN
     Dosage: 50 MG, BID
     Dates: end: 20161225
  7. SENNOSIDE                          /00571901/ [Concomitant]
     Active Substance: SENNOSIDES A AND B
     Dosage: 36 MG, QD
     Dates: end: 20161225
  8. SILECE [Concomitant]
     Active Substance: FLUNITRAZEPAM
     Dosage: 1 MG, UNK
     Dates: end: 20161225
  9. TRAMAL [Concomitant]
     Active Substance: TRAMADOL
     Indication: ANALGESIC THERAPY
     Dosage: 50 MG, BID
     Dates: start: 2015, end: 20161225
  10. LENDORMIN [Concomitant]
     Active Substance: BROTIZOLAM
     Dosage: 0.25 MG, QD
     Dates: end: 20161225
  11. MAGNESIUM HYDROXIDE. [Concomitant]
     Active Substance: MAGNESIUM HYDROXIDE
     Dosage: 330 MG, TID
     Dates: end: 20161225
  12. HUMALOG MIX75/25 [Concomitant]
     Active Substance: INSULIN LISPRO
     Dosage: UNK
  13. NAUZELIN [Concomitant]
     Active Substance: DOMPERIDONE
     Indication: VOMITING
     Dosage: 1 DF, BID
     Dates: start: 2015, end: 20161225
  14. SEIBULE [Concomitant]
     Active Substance: MIGLITOL
     Dosage: 150 MG, UNK
     Dates: end: 20161225
  15. NORVASC [Concomitant]
     Active Substance: AMLODIPINE BESYLATE
     Dosage: 5 MG, BID
     Dates: end: 20161225
  16. VOLTAREN [Concomitant]
     Active Substance: DICLOFENAC SODIUM
     Dosage: 25 MG, UNK
     Route: 054
     Dates: end: 20161225
  17. PROCESSED ACONITE ROOT [Concomitant]
     Active Substance: ACONITUM NAPELLUS ROOT
     Indication: ANALGESIC THERAPY
     Dosage: 2 DF, TID
     Dates: start: 2015, end: 20161225
  18. HUMALOG MIX75/25 [Concomitant]
     Active Substance: INSULIN LISPRO
     Indication: DIABETES MELLITUS
     Dosage: 10-0-5 (UNIT), BID
     Route: 058
     Dates: end: 20161225
  19. LYRICA [Concomitant]
     Active Substance: PREGABALIN
     Indication: ANALGESIC THERAPY
     Dosage: 150 MG, QID
     Dates: start: 2015, end: 20161225
  20. TANATRIL [Concomitant]
     Active Substance: IMIDAPRIL
     Dosage: 5 MG, BID
     Dates: end: 20161225
  21. BAYASPIRIN [Concomitant]
     Active Substance: ASPIRIN
     Indication: CEREBRAL INFARCTION
     Dosage: 100 MG, UNK
     Dates: end: 20161225

REACTIONS (3)
  - Cerebral haemorrhage [Fatal]
  - Brain herniation [Unknown]
  - Headache [Unknown]

NARRATIVE: CASE EVENT DATE: 20161224
